FAERS Safety Report 12728734 (Version 2)
Quarter: 2016Q4

REPORT INFORMATION
  Report Type: Spontaneous
  Country: US (occurrence: US)
  Receive Date: 20160909
  Receipt Date: 20161003
  Transmission Date: 20170207
  Serious: Yes (Death)
  Sender: FDA-Public Use
  Company Number: US-INSYS THERAPEUTICS, INC-INS201608-000469

PATIENT
  Age: 74 Year
  Sex: Male
  Weight: 55.33 kg

DRUGS (12)
  1. ACETYLSALICYLIC ACID [Concomitant]
     Active Substance: ASPIRIN
  2. SENOKOT-S [Concomitant]
     Active Substance: DOCUSATE SODIUM\SENNOSIDES
  3. ZOFRAN [Concomitant]
     Active Substance: ONDANSETRON HYDROCHLORIDE
  4. FLOMAX [Concomitant]
     Active Substance: TAMSULOSIN HYDROCHLORIDE
  5. DEXAMETHASONE. [Concomitant]
     Active Substance: DEXAMETHASONE
  6. PRAVASTATIN. [Concomitant]
     Active Substance: PRAVASTATIN
  7. MORPHINE [Concomitant]
     Active Substance: MORPHINE
  8. COUMADIN [Concomitant]
     Active Substance: WARFARIN SODIUM
  9. DIFLUCAN [Concomitant]
     Active Substance: FLUCONAZOLE
  10. VITAMIN K [Concomitant]
     Active Substance: PHYTONADIONE
  11. SUBSYS [Suspect]
     Active Substance: FENTANYL
     Indication: NEOPLASM MALIGNANT
     Route: 060
     Dates: start: 20160721
  12. COREG [Concomitant]
     Active Substance: CARVEDILOL

REACTIONS (1)
  - Neoplasm progression [Fatal]

NARRATIVE: CASE EVENT DATE: 20160817
